FAERS Safety Report 12719476 (Version 1)
Quarter: 2016Q3

REPORT INFORMATION
  Report Type: Spontaneous
  Country: US (occurrence: US)
  Receive Date: 20160907
  Receipt Date: 20160907
  Transmission Date: 20161109
  Serious: Yes (Hospitalization, Other)
  Sender: FDA-Public Use
  Company Number: US-ROCHE-1825229

PATIENT
  Sex: Female

DRUGS (3)
  1. XELODA [Suspect]
     Active Substance: CAPECITABINE
     Dosage: 14 DAYS ON, 7 DAYS OFF
     Route: 048
  2. XELODA [Suspect]
     Active Substance: CAPECITABINE
     Indication: BREAST CANCER STAGE IV
     Dosage: 14 DAYS ON, 7 DAYS OFF
     Route: 048
     Dates: start: 20160808
  3. XELODA [Suspect]
     Active Substance: CAPECITABINE
     Dosage: NOW 1 WEEK ON AND 1 WEEK OFF, 2 TABLETS IN MORNING AND 3 TABLETS IN THE AFTERNOON
     Route: 048

REACTIONS (9)
  - Palmar-plantar erythrodysaesthesia syndrome [Not Recovered/Not Resolved]
  - Gait disturbance [Unknown]
  - Fluid retention [Unknown]
  - Malaise [Unknown]
  - Blister [Unknown]
  - Pain in extremity [Unknown]
  - Dyspnoea [Recovered/Resolved]
  - Vomiting [Recovered/Resolved with Sequelae]
  - Disorientation [Unknown]
